FAERS Safety Report 7565559-4 (Version None)
Quarter: 2011Q2

REPORT INFORMATION
  Report Type: 
  Country: None (occurrence: None)
  Receive Date: 20110615
  Receipt Date: 20110608
  Transmission Date: 20111010
  Serious: Yes (Hospitalization)
  Sender: FDA-Public Use
  Company Number: FUR-11-03

PATIENT
  Age: 61 Year
  Sex: Male

DRUGS (12)
  1. CARBAMAZEPINE [Concomitant]
  2. PANTOPRAZOLE [Concomitant]
  3. CLONAZEPAM [Concomitant]
  4. AMITRIPTYLINE [Concomitant]
  5. FUROSEMIDE [Suspect]
     Dosage: 80MG 2XS, DAY
  6. ATORVASTATIN [Concomitant]
  7. ATENOLOL [Concomitant]
  8. ASPIRIN [Concomitant]
  9. INSULIN [Concomitant]
  10. ISOSORBIDE MONONITRATE [Concomitant]
  11. SPIRONOLACTONE [Concomitant]
  12. ENALAPRIL MALEATE [Concomitant]

REACTIONS (5)
  - TACHYPNOEA [None]
  - HYPERKALAEMIA [None]
  - DEHYDRATION [None]
  - BLOOD SODIUM DECREASED [None]
  - RENAL FAILURE ACUTE [None]
